FAERS Safety Report 10217488 (Version 2)
Quarter: 2014Q2

REPORT INFORMATION
  Report Type: Other
  Country: CA (occurrence: CA)
  Receive Date: 20140604
  Receipt Date: 20140604
  Transmission Date: 20141212
  Serious: Yes (Other)
  Sender: FDA-Public Use
  Company Number: CA-GSKPPD-2014GSK001909

PATIENT
  Sex: 0

DRUGS (1)
  1. AVANDIA [Suspect]
     Indication: DIABETES MELLITUS
     Route: 048
     Dates: start: 20050517, end: 20080918

REACTIONS (5)
  - Acute coronary syndrome [None]
  - Catheterisation cardiac [None]
  - Vascular graft [None]
  - Myocardial infarction [None]
  - Cardiac failure [None]
